FAERS Safety Report 8613640-0 (Version None)
Quarter: 2012Q3

REPORT INFORMATION
  Report Type: 
  Country: None (occurrence: None)
  Receive Date: 20120823
  Receipt Date: 20120813
  Transmission Date: 20120928
  Serious: Yes (Other)
  Sender: FDA-Public Use
  Company Number: GB-AMGEN-GBRSP2012045468

PATIENT
  Age: 49 Year
  Sex: Male

DRUGS (7)
  1. ENBREL [Suspect]
     Indication: RHEUMATOID ARTHRITIS
  2. HYDROXYCHLOROQUINE SULFATE [Concomitant]
     Indication: PROPHYLAXIS
     Dosage: 200 UNK, 2X/DAY
     Route: 048
     Dates: start: 20110209, end: 20110701
  3. FOLIC ACID [Concomitant]
     Dosage: 5 MG, WEEKLY
     Route: 048
     Dates: start: 20110209, end: 20120601
  4. ENBREL [Suspect]
     Indication: PSORIASIS
     Dosage: 50 MG, WEEKLY
     Route: 058
     Dates: start: 20110615, end: 20120718
  5. ETODOLAC [Concomitant]
     Indication: ANALGESIC THERAPY
     Dosage: UNK AS NEEDED
     Route: 048
     Dates: start: 20110209
  6. ACETAMINOPHEN AND CODEINE PHOSPHATE [Concomitant]
     Indication: ANALGESIC THERAPY
     Dosage: UNK, AS NEEDED
     Dates: start: 20110209
  7. METHOTREXATE [Concomitant]
     Indication: PROPHYLAXIS
     Dosage: 20 MG, WEEKLY
     Route: 048
     Dates: start: 20110209, end: 20110501

REACTIONS (1)
  - LIP AND/OR ORAL CAVITY CANCER [None]
